FAERS Safety Report 8623386-0 (Version None)
Quarter: 2012Q3

REPORT INFORMATION
  Report Type: 
  Country: None (occurrence: None)
  Receive Date: 20120827
  Receipt Date: 20120815
  Transmission Date: 20120928
  Serious: Yes (Life-Threatening, Hospitalization)
  Sender: FDA-Public Use
  Company Number: CH-SANOFI-AVENTIS-2012SA059300

PATIENT
  Age: 75 Year
  Sex: Male
  Weight: 88 kg

DRUGS (32)
  1. LASIX [Suspect]
     Route: 048
     Dates: start: 20120313, end: 20120407
  2. VANCOCIN HYDROCHLORIDE [Suspect]
     Route: 042
     Dates: start: 20120407, end: 20120421
  3. COZAAR [Concomitant]
     Route: 048
     Dates: start: 20120413, end: 20120419
  4. MARCUMAR [Concomitant]
     Route: 048
     Dates: start: 20120313
  5. LASIX [Suspect]
     Route: 048
     Dates: start: 20120409, end: 20120416
  6. TRAMADOL HYDROCHLORIDE [Suspect]
     Route: 065
     Dates: start: 20120313, end: 20120314
  7. DURAGESIC-100 [Suspect]
     Route: 062
     Dates: start: 20120411, end: 20120419
  8. CITALOPRAM HYDROBROMIDE [Suspect]
     Route: 048
     Dates: start: 20120403
  9. NOVALGIN [Concomitant]
     Route: 048
     Dates: start: 20120411
  10. ALLOPURINOL [Concomitant]
     Route: 048
     Dates: start: 20120407
  11. PERENTEROL [Concomitant]
     Route: 048
     Dates: start: 20120414
  12. CEFEPIME HYDROCHLORIDE [Suspect]
     Route: 042
     Dates: start: 20120407, end: 20120421
  13. MOTILIUM [Concomitant]
     Route: 048
     Dates: start: 20120412, end: 20120420
  14. FRAGMIN [Concomitant]
     Dosage: DOSE: 5000 LU
     Dates: start: 20120407, end: 20120421
  15. PIPAMPERONE [Concomitant]
     Route: 048
     Dates: start: 20120313
  16. NITRODERM [Concomitant]
     Route: 062
     Dates: start: 20120413
  17. LASILACTON [Suspect]
     Route: 048
     Dates: start: 20120407
  18. LYRICA [Concomitant]
     Route: 048
     Dates: start: 20120313, end: 20120414
  19. ACETAMINOPHEN [Concomitant]
     Route: 048
     Dates: start: 20120419
  20. TORSEMIDE [Suspect]
     Route: 048
     Dates: start: 20120417
  21. MORPHINE HYDROCHLORIDE [Suspect]
     Dosage: DOSE 2%
     Route: 065
     Dates: start: 20120313
  22. NAVOBAN [Concomitant]
     Route: 048
     Dates: start: 20120412, end: 20120416
  23. PANTOPRAZOLE [Concomitant]
     Dates: start: 20120422
  24. DROPERIDOL [Concomitant]
     Dates: start: 20120411, end: 20120421
  25. KONAKION [Concomitant]
     Dates: start: 20120316, end: 20120329
  26. FRAGMIN [Concomitant]
     Dosage: 7500 LU DOSE
     Dates: start: 20120317, end: 20120407
  27. ONDANSETRON [Concomitant]
     Route: 048
     Dates: start: 20120412
  28. LEVOTHYROXINE SODIUM [Concomitant]
     Route: 048
     Dates: start: 20120313
  29. METOPROLOL TARTRATE [Concomitant]
     Route: 048
     Dates: start: 20120313
  30. LOPERAMIDE HCL [Concomitant]
     Route: 048
     Dates: start: 20120410
  31. MOVIPREP [Concomitant]
     Route: 048
     Dates: start: 20120313, end: 20120414
  32. FOLVITE [Concomitant]
     Route: 048
     Dates: start: 20120313

REACTIONS (3)
  - RENAL FAILURE ACUTE [None]
  - DRUG LEVEL INCREASED [None]
  - MYOCLONUS [None]
